FAERS Safety Report 5546272-1 (Version None)
Quarter: 2007Q4

REPORT INFORMATION
  Report Type: 
  Country: None (occurrence: None)
  Receive Date: 20071211
  Receipt Date: 20070205
  Transmission Date: 20080405
  Serious: No
  Sender: FDA-Public Use
  Company Number: US-AMGEN-KDL210045

PATIENT
  Sex: Female

DRUGS (2)
  1. ENBREL [Suspect]
     Indication: JUVENILE ARTHRITIS
     Route: 058
     Dates: start: 20000101
  2. METHOTREXATE [Concomitant]
     Dates: start: 19980101

REACTIONS (4)
  - INJECTION SITE PAIN [None]
  - INJECTION SITE PRURITUS [None]
  - PHARYNGOLARYNGEAL PAIN [None]
  - SINUS DISORDER [None]
